FAERS Safety Report 5243795-X (Version None)
Quarter: 2007Q1

REPORT INFORMATION
  Report Type: 
  Country: None (occurrence: None)
  Receive Date: 20070215
  Receipt Date: 20061218
  Transmission Date: 20070707
  Serious: Yes (Other)
  Sender: FDA-Public Use
  Company Number: 8020607

PATIENT
  Sex: Female

DRUGS (2)
  1. KEPPRA [Suspect]
     Dosage: 1000 MG 2/D PO
     Route: 048
  2. TOPIRAMATE [Suspect]
     Dosage: 200 MG 2/D PO
     Route: 048

REACTIONS (6)
  - ABORTION INDUCED [None]
  - ALOPECIA [None]
  - DIZZINESS [None]
  - DRUG EXPOSURE DURING PREGNANCY [None]
  - FATIGUE [None]
  - UNWANTED PREGNANCY [None]
